FAERS Safety Report 8242548-8 (Version None)
Quarter: 2012Q1

REPORT INFORMATION
  Report Type: 
  Country: None (occurrence: None)
  Receive Date: 20120329
  Receipt Date: 20120321
  Transmission Date: 20120608
  Serious: Yes (Other)
  Sender: FDA-Public Use
  Company Number: PHHY2012NO024562

PATIENT
  Sex: Male

DRUGS (1)
  1. GLEEVEC [Suspect]

REACTIONS (3)
  - NEOPLASM MALIGNANT [None]
  - ORAL MUCOSAL DISCOLOURATION [None]
  - MALIGNANT MELANOMA [None]
